FAERS Safety Report 24763236 (Version 1)
Quarter: 2024Q4

REPORT INFORMATION
  Report Type: Spontaneous
  Country: MX (occurrence: MX)
  Receive Date: 20241222
  Receipt Date: 20241222
  Transmission Date: 20250115
  Serious: Yes (Other)
  Sender: ASTELLAS
  Company Number: MX-ASTELLAS-2024-AER-025899

PATIENT
  Age: 39 Year
  Sex: Female

DRUGS (3)
  1. TACROLIMUS [Suspect]
     Active Substance: TACROLIMUS
     Indication: Liver transplant
     Route: 065
  2. TACROLIMUS [Suspect]
     Active Substance: TACROLIMUS
     Indication: Liver transplant
     Route: 065
  3. MYCOPHENOLATE MOFETIL [Concomitant]
     Active Substance: MYCOPHENOLATE MOFETIL
     Indication: Immunosuppression
     Route: 065

REACTIONS (11)
  - Large intestinal ulcer [Unknown]
  - Haematochezia [Unknown]
  - Intestinal perforation [Unknown]
  - Abdominal abscess [Unknown]
  - Ascites [Unknown]
  - Hepatic artery stenosis [Unknown]
  - Bacteroides infection [Unknown]
  - Cytomegalovirus infection [Unknown]
  - Escherichia infection [Unknown]
  - Gastrointestinal mucormycosis [Recovered/Resolved]
  - Pleural effusion [Unknown]
